FAERS Safety Report 4521025-1 (Version None)
Quarter: 2004Q4

REPORT INFORMATION
  Report Type: 
  Country: None (occurrence: None)
  Receive Date: 20041208
  Receipt Date: 20041202
  Transmission Date: 20050328
  Serious: Yes (Other)
  Sender: FDA-Public Use
  Company Number: 200412726DE

PATIENT
  Age: 59 Year
  Sex: Male
  Weight: 115 kg

DRUGS (5)
  1. AMARYL [Suspect]
     Indication: DIABETES MELLITUS
     Route: 048
     Dates: start: 20030801, end: 20041108
  2. FOSINOPRIL SODIUM [Concomitant]
     Route: 048
     Dates: start: 20010501
  3. METOHEXAL [Concomitant]
     Indication: HYPERTENSION
     Route: 048
     Dates: start: 20010501
  4. HCT [Concomitant]
     Indication: HYPERTENSION
     Route: 048
     Dates: start: 20010601
  5. LANTUS [Concomitant]
     Indication: DIABETES MELLITUS
     Route: 058
     Dates: start: 20030801

REACTIONS (1)
  - ANGIONEUROTIC OEDEMA [None]
